FAERS Safety Report 5141398-9 (Version None)
Quarter: 2006Q4

REPORT INFORMATION
  Report Type: 
  Country: None (occurrence: None)
  Receive Date: 20061101
  Receipt Date: 20061024
  Transmission Date: 20070319
  Serious: Yes (Hospitalization)
  Sender: FDA-Public Use
  Company Number: AU-GLAXOSMITHKLINE-B0444100A

PATIENT
  Age: 45 Year
  Sex: Female
  Weight: 126 kg

DRUGS (15)
  1. ROSIGLITAZONE [Suspect]
     Indication: DIABETES MELLITUS NON-INSULIN-DEPENDENT
     Route: 048
  2. DIAFORMIN [Concomitant]
     Indication: DIABETES MELLITUS NON-INSULIN-DEPENDENT
     Dosage: 2500MG PER DAY
     Route: 048
     Dates: start: 20020322
  3. NAPROSYN [Concomitant]
     Indication: PLANTAR FASCIITIS
     Dosage: 500MG PER DAY
     Route: 048
     Dates: start: 19970101
  4. COVERSYL PLUS [Concomitant]
     Indication: HYPERTENSION
     Route: 048
     Dates: start: 20010101
  5. ZYLOPRIM [Concomitant]
     Indication: HYPERURICAEMIA
     Dosage: 100MG TWICE PER DAY
     Route: 048
     Dates: start: 19970101
  6. ACETAMINOPHEN W/ CODEINE [Concomitant]
     Indication: MIGRAINE
     Route: 048
     Dates: start: 19950101
  7. DERALIN [Concomitant]
     Indication: MIGRAINE
     Dosage: 80MG PER DAY
     Route: 048
     Dates: start: 20051115
  8. CLINDAMYCIN [Concomitant]
     Dosage: 2CAP FOUR TIMES PER DAY
     Route: 048
  9. FENOFIBRATE [Concomitant]
     Dosage: 1TAB IN THE MORNING
     Route: 048
  10. FUROSEMIDE [Concomitant]
     Dosage: 2TAB TWICE PER DAY
     Route: 048
  11. METRONIDAZOLE [Concomitant]
     Dosage: 1TAB THREE TIMES PER DAY
     Route: 048
  12. MICONAZOLE [Concomitant]
     Route: 061
  13. PERINDOPRIL ERBUMINE [Concomitant]
     Dosage: 1TAB IN THE MORNING
     Route: 048
  14. ROXITHROMYCIN [Concomitant]
     Dosage: 1TAB TWICE PER DAY
     Route: 048
  15. SALBUTAMOL [Concomitant]
     Indication: ASTHMA
     Dosage: 2PUFF TWICE PER DAY
     Route: 055

REACTIONS (8)
  - CARDIAC FAILURE CONGESTIVE [None]
  - CELLULITIS [None]
  - DYSPNOEA EXERTIONAL [None]
  - HYPOXIA [None]
  - LOBAR PNEUMONIA [None]
  - OEDEMA PERIPHERAL [None]
  - TACHYPNOEA [None]
  - WEIGHT DECREASED [None]
